FAERS Safety Report 17764260 (Version 6)
Quarter: 2020Q4

REPORT INFORMATION
  Report Type: Report from Study
  Country: US (occurrence: US)
  Receive Date: 20200511
  Receipt Date: 20201105
  Transmission Date: 20210113
  Serious: Yes (Death, Hospitalization, Other)
  Sender: FDA-Public Use
  Company Number: US-ROCHE-2594767

PATIENT
  Age: 84 Year
  Sex: Male
  Weight: 78 kg

DRUGS (65)
  1. 5-FLUOROURACIL [Suspect]
     Active Substance: FLUOROURACIL
     Indication: ADENOCARCINOMA OF COLON
     Dosage: ON DAY 1 FOLLOWED BY 2400MG/M2 IV OVER 46 HOURS DAYS 1-3
     Route: 040
  2. MORPHINE [Concomitant]
     Active Substance: MORPHINE
     Route: 042
     Dates: start: 20200418, end: 20200420
  3. VIBRAMYCIN [Concomitant]
     Active Substance: DOXYCYCLINE
     Dates: start: 20200406, end: 20200406
  4. LOVENOX [Concomitant]
     Active Substance: ENOXAPARIN SODIUM
     Dates: start: 20200418, end: 20200418
  5. ROBINUL [Concomitant]
     Active Substance: GLYCOPYRROLATE
     Dates: start: 20200418, end: 20200418
  6. SENOKOT [Concomitant]
     Active Substance: SENNOSIDES
     Dates: start: 20200418, end: 20200420
  7. TYLENOL [Concomitant]
     Active Substance: ACETAMINOPHEN
     Dates: start: 20200417, end: 20200417
  8. DECADRON [Concomitant]
     Active Substance: DEXAMETHASONE
     Dates: start: 20200218, end: 20200218
  9. ELOXATIN [Concomitant]
     Active Substance: OXALIPLATIN
     Dates: start: 20200203, end: 20200203
  10. LORAZEPAM. [Concomitant]
     Active Substance: LORAZEPAM
     Dates: start: 20200418
  11. MORPHINE [Concomitant]
     Active Substance: MORPHINE
     Route: 042
     Dates: start: 20200419, end: 20200420
  12. ATIVAN [Concomitant]
     Active Substance: LORAZEPAM
     Dates: start: 20200419, end: 20200419
  13. CINVANTI [Concomitant]
     Active Substance: APREPITANT
     Dates: start: 20200218, end: 20200218
  14. DECADRON [Concomitant]
     Active Substance: DEXAMETHASONE
     Dates: start: 20200203, end: 20200203
  15. ATEZOLIZUMAB. [Suspect]
     Active Substance: ATEZOLIZUMAB
     Indication: ADENOCARCINOMA OF COLON
     Dosage: THE DATE OF LAST DOSE OF ATEZOLIZUMAB PRIOR TO EVENT ONSET: 02/MAR/2020.
     Route: 041
     Dates: start: 20191216
  16. MORPHINE [Concomitant]
     Active Substance: MORPHINE
     Dates: start: 20200420, end: 20200420
  17. MORPHINE [Concomitant]
     Active Substance: MORPHINE
     Dates: start: 20200420, end: 20200421
  18. HALDOL [Concomitant]
     Active Substance: HALOPERIDOL
     Dates: start: 20200419, end: 20200420
  19. SYNTHROID [Concomitant]
     Active Substance: LEVOTHYROXINE SODIUM
     Dosage: 75 MCG
     Route: 048
     Dates: start: 20200418, end: 20200419
  20. LISINOPRIL. [Concomitant]
     Active Substance: LISINOPRIL
     Dates: start: 20200418, end: 20200418
  21. ATIVAN [Concomitant]
     Active Substance: LORAZEPAM
     Dosage: 2 MG/ML
     Dates: start: 20200419, end: 20200420
  22. SOLU-MEDROL [Concomitant]
     Active Substance: METHYLPREDNISOLONE SODIUM SUCCINATE
     Dates: start: 20200418, end: 20200420
  23. TYLENOL [Concomitant]
     Active Substance: ACETAMINOPHEN
     Dates: start: 20200407, end: 20200407
  24. ASPIRIN. [Concomitant]
     Active Substance: ASPIRIN
     Route: 048
     Dates: start: 20200417, end: 20200417
  25. DECADRON [Concomitant]
     Active Substance: DEXAMETHASONE
     Dates: start: 20200302, end: 20200302
  26. ALOXI [Concomitant]
     Active Substance: PALONOSETRON HYDROCHLORIDE
     Dates: start: 20200218, end: 20200218
  27. LEUCOVORIN CALCIUM. [Suspect]
     Active Substance: LEUCOVORIN CALCIUM
     Indication: ADENOCARCINOMA OF COLON
     Route: 042
  28. MORPHINE [Concomitant]
     Active Substance: MORPHINE
     Dates: start: 20200418
  29. MORPHINE [Concomitant]
     Active Substance: MORPHINE
     Route: 042
     Dates: start: 20200418, end: 20200419
  30. MORPHINE [Concomitant]
     Active Substance: MORPHINE
     Dates: start: 20200420, end: 20200421
  31. LOVENOX [Concomitant]
     Active Substance: ENOXAPARIN SODIUM
     Dates: start: 20200418, end: 20200420
  32. ROBINUL [Concomitant]
     Active Substance: GLYCOPYRROLATE
     Dates: start: 20200420, end: 20200420
  33. ROBINUL [Concomitant]
     Active Substance: GLYCOPYRROLATE
     Dates: start: 20200420, end: 20200421
  34. SYNTHROID [Concomitant]
     Active Substance: LEVOTHYROXINE SODIUM
     Dosage: 75 MCG
     Route: 048
     Dates: start: 20200418, end: 20200419
  35. ATIVAN [Concomitant]
     Active Substance: LORAZEPAM
     Dates: start: 20200419, end: 20200420
  36. ATIVAN [Concomitant]
     Active Substance: LORAZEPAM
     Dates: start: 20200420, end: 20200421
  37. REGLAN [Concomitant]
     Active Substance: METOCLOPRAMIDE HYDROCHLORIDE
     Route: 042
     Dates: start: 20200418, end: 20200419
  38. ROXICODONE [Concomitant]
     Active Substance: OXYCODONE HYDROCHLORIDE
     Route: 048
     Dates: start: 20200418, end: 20200420
  39. DELTASONE [Concomitant]
     Active Substance: PREDNISONE
     Dates: start: 20200418, end: 20200418
  40. OXALIPLATIN. [Suspect]
     Active Substance: OXALIPLATIN
     Indication: ADENOCARCINOMA OF COLON
     Dosage: OVER 2 HOURS ON DAY 1
     Route: 042
     Dates: start: 20191216
  41. HALDOL [Concomitant]
     Active Substance: HALOPERIDOL
     Dates: start: 20200420, end: 20200421
  42. RELISTOR [Concomitant]
     Active Substance: METHYLNALTREXONE BROMIDE
     Route: 058
     Dates: start: 20200419, end: 20200420
  43. SENOKOT [Concomitant]
     Active Substance: SENNOSIDES
     Dates: start: 20200418, end: 20200419
  44. AQUAPHOR (UNITED STATES) [Concomitant]
     Dates: start: 20200420, end: 20200420
  45. ONDANSETRON [Concomitant]
     Active Substance: ONDANSETRON
     Dates: start: 20200302, end: 20200302
  46. MORPHINE [Concomitant]
     Active Substance: MORPHINE
     Route: 042
     Dates: start: 20200420, end: 20200420
  47. MORPHINE [Concomitant]
     Active Substance: MORPHINE
     Route: 042
     Dates: start: 20200419, end: 20200419
  48. MORPHINE [Concomitant]
     Active Substance: MORPHINE
     Route: 042
     Dates: start: 20200418, end: 20200418
  49. ROCEPHIN [Concomitant]
     Active Substance: CEFTRIAXONE SODIUM
     Dates: start: 20200406, end: 20200406
  50. TYLENOL [Concomitant]
     Active Substance: ACETAMINOPHEN
     Dates: start: 20200418, end: 20200419
  51. TYLENOL [Concomitant]
     Active Substance: ACETAMINOPHEN
     Dates: start: 20200418, end: 20200419
  52. HALDOL [Concomitant]
     Active Substance: HALOPERIDOL
     Dates: start: 20200420, end: 20200420
  53. FLUZONE HIGH-DOSE NOS [Concomitant]
     Active Substance: INFLUENZA A VIRUS A/CALIFORNIA/7/2009 X-179A (H1N1) ANTIGEN (FORMALDEHYDE INACTIVATED)\INFLUENZA A VIRUS A/VICTORIA/210/2009 X-187 (H3N2) ANTIGEN (FORMALDEHYDE INACTIVATED)\INFLUENZA B VIRUS B/BRISBANE/60/2008 ANTIGEN (FORMALDEHYDE INACTIVATED)
     Route: 030
     Dates: start: 20200418, end: 20200418
  54. MELATONIN [Concomitant]
     Active Substance: MELATONIN
     Route: 048
     Dates: start: 20200418, end: 20200420
  55. MIRALAX [Concomitant]
     Active Substance: POLYETHYLENE GLYCOL 3350
     Dates: start: 20200419, end: 20200419
  56. TYLENOL [Concomitant]
     Active Substance: ACETAMINOPHEN
     Dates: start: 20200420
  57. MORPHINE [Concomitant]
     Active Substance: MORPHINE
     Route: 042
     Dates: start: 20200420, end: 20200420
  58. ROCEPHIN [Concomitant]
     Active Substance: CEFTRIAXONE SODIUM
     Dates: start: 20200418, end: 20200420
  59. VIBRAMYCIN [Concomitant]
     Active Substance: DOXYCYCLINE
     Dates: start: 20200418, end: 20200420
  60. SYNTHROID [Concomitant]
     Active Substance: LEVOTHYROXINE SODIUM
     Dates: start: 20200408, end: 20200408
  61. REGLAN [Concomitant]
     Active Substance: METOCLOPRAMIDE HYDROCHLORIDE
     Route: 042
     Dates: start: 20200418, end: 20200418
  62. MORPHINE SULPHATE [Concomitant]
     Active Substance: MORPHINE SULFATE
     Dates: start: 20200420, end: 20200420
  63. MIRALAX [Concomitant]
     Active Substance: POLYETHYLENE GLYCOL 3350
     Dates: start: 20200418, end: 20200419
  64. FLOMAX [Concomitant]
     Active Substance: TAMSULOSIN HYDROCHLORIDE
     Dates: start: 20200418, end: 20200420
  65. ELOXATIN [Concomitant]
     Active Substance: OXALIPLATIN
     Dates: start: 20200218, end: 20200218

REACTIONS (22)
  - Insomnia [Recovered/Resolved]
  - Fatigue [Not Recovered/Not Resolved]
  - Decreased appetite [Recovered/Resolved]
  - Abdominal pain [Recovered/Resolved]
  - Urinary tract infection [Recovered/Resolved]
  - Back pain [Recovered/Resolved]
  - Aspartate aminotransferase increased [Recovered/Resolved]
  - Weight decreased [Recovered/Resolved]
  - Gait disturbance [Recovered/Resolved]
  - Hyponatraemia [Recovered/Resolved]
  - Erythema [Recovered/Resolved]
  - Blood alkaline phosphatase increased [Recovered/Resolved]
  - COVID-19 [Unknown]
  - Dry skin [Recovered/Resolved]
  - Nausea [Recovered/Resolved]
  - Pollakiuria [Recovered/Resolved]
  - Paraesthesia [Recovered/Resolved]
  - Anxiety [Recovered/Resolved]
  - Insomnia [Recovered/Resolved]
  - Pneumonia [Fatal]
  - Constipation [Recovered/Resolved]
  - Alanine aminotransferase increased [Recovered/Resolved]

NARRATIVE: CASE EVENT DATE: 20191216
